FAERS Safety Report 14924202 (Version 2)
Quarter: 2020Q3

REPORT INFORMATION
  Report Type: Spontaneous
  Country: HU (occurrence: HU)
  Receive Date: 20180522
  Receipt Date: 20180612
  Transmission Date: 20201105
  Serious: Yes (Hospitalization, Other)
  Sender: FDA-Public Use
  Company Number: HU-MYLANLABS-2018M1032382

PATIENT
  Age: 6 Month
  Sex: Female

DRUGS (4)
  1. AMIKACIN. [Suspect]
     Active Substance: AMIKACIN
     Indication: BACTERIAL SEPSIS
     Dosage: UNK
  2. AMPICILLIN [Suspect]
     Active Substance: AMPICILLIN
     Indication: PSEUDOMONAL SEPSIS
     Dosage: UNK
     Route: 065
  3. TOBRAMYCIN. [Suspect]
     Active Substance: TOBRAMYCIN
     Indication: PSEUDOMONAL SEPSIS
     Dosage: UNK
     Route: 065
  4. MEROPENEM. [Suspect]
     Active Substance: MEROPENEM
     Indication: BACTERIAL SEPSIS
     Dosage: UNK

REACTIONS (9)
  - Rash erythematous [Recovered/Resolved]
  - Drug ineffective [Recovered/Resolved]
  - Skin lesion [Recovered/Resolved]
  - General physical health deterioration [Recovered/Resolved]
  - Condition aggravated [Unknown]
  - Perineal necrosis [Unknown]
  - Oedema [Recovered/Resolved]
  - Pseudomonas infection [Recovered/Resolved]
  - Erythema nodosum [Unknown]
